FAERS Safety Report 5374288-7 (Version None)
Quarter: 2007Q2

REPORT INFORMATION
  Report Type: 
  Country: None (occurrence: None)
  Receive Date: 20070629
  Receipt Date: 20061220
  Transmission Date: 20071010
  Serious: Yes (Hospitalization)
  Sender: FDA-Public Use
  Company Number: FR-ROCHE-311675

PATIENT
  Age: 29 Year
  Sex: Male

DRUGS (3)
  1. SORIATANE [Suspect]
     Route: 048
     Dates: start: 19980615, end: 19980615
  2. SORIATANE [Suspect]
     Route: 048
     Dates: start: 20000615, end: 20000615
  3. SORIATANE [Suspect]
     Route: 048
     Dates: start: 20020413, end: 20020415

REACTIONS (7)
  - DERMATITIS EXFOLIATIVE [None]
  - ENANTHEMA [None]
  - ERYTHEMA [None]
  - HYPERSENSITIVITY [None]
  - SIMILAR REACTION ON PREVIOUS EXPOSURE TO DRUG [None]
  - SKIN EXFOLIATION [None]
  - SKIN INFLAMMATION [None]
